FAERS Safety Report 6704119-1 (Version None)
Quarter: 2010Q2

REPORT INFORMATION
  Report Type: 
  Country: None (occurrence: None)
  Receive Date: 20100428
  Receipt Date: 20100413
  Transmission Date: 20101027
  Serious: Yes (Hospitalization)
  Sender: FDA-Public Use
  Company Number: 2010-00426

PATIENT
  Age: 68 Year
  Sex: Male

DRUGS (4)
  1. SIMVASTATIN [Suspect]
     Indication: BLOOD CHOLESTEROL INCREASED
     Dosage: 40 MG (1 IN 1 D), ORAL
     Route: 048
     Dates: start: 20020101, end: 20080101
  2. FUSIDIC ACID [Suspect]
     Indication: INFECTION
     Dosage: 500 MG (3 IN 1 D), ORAL
     Route: 048
     Dates: start: 20081001, end: 20081001
  3. ATENOLOL [Concomitant]
  4. FLOXACILLIN SODIUM [Concomitant]
     Dates: start: 20020101, end: 20080101

REACTIONS (12)
  - ALANINE AMINOTRANSFERASE INCREASED [None]
  - ALPHA HYDROXYBUTYRATE DEHYDROGENASE INCREASED [None]
  - ANKLE FRACTURE [None]
  - ASPARTATE AMINOTRANSFERASE INCREASED [None]
  - BLOOD CREATINE INCREASED [None]
  - BLOOD CREATINE PHOSPHOKINASE INCREASED [None]
  - BLOOD UREA INCREASED [None]
  - BLOOD URINE PRESENT [None]
  - DRUG INTERACTION [None]
  - MYALGIA [None]
  - PROTEIN URINE PRESENT [None]
  - SEPTIC ARTHRITIS STAPHYLOCOCCAL [None]
